FAERS Safety Report 7995912-6 (Version None)
Quarter: 2011Q4

REPORT INFORMATION
  Report Type: 
  Country: None (occurrence: None)
  Receive Date: 20111220
  Receipt Date: 20111219
  Transmission Date: 20120403
  Serious: Yes (Death)
  Sender: FDA-Public Use
  Company Number: CHPA2011US018257

PATIENT
  Sex: Female

DRUGS (1)
  1. MAALOX UNKNOWN [Suspect]
     Indication: BOWEL MOVEMENT IRREGULARITY
     Dosage: UNK , UNK
     Route: 048

REACTIONS (2)
  - DEATH [None]
  - OFF LABEL USE [None]
